FAERS Safety Report 18544601 (Version 2)
Quarter: 2020Q4

REPORT INFORMATION
  Report Type: Report from Study
  Country: IN (occurrence: IN)
  Receive Date: 20201125
  Receipt Date: 20201126
  Transmission Date: 20210114
  Serious: Yes (Death)
  Sender: FDA-Public Use
  Company Number: NVSC2020IN314522

PATIENT
  Sex: Male

DRUGS (1)
  1. VYMADA [Suspect]
     Active Substance: SACUBITRIL\VALSARTAN
     Indication: CARDIAC FAILURE CONGESTIVE
     Dosage: 100 MG, BID
     Route: 048
     Dates: start: 20190917

REACTIONS (1)
  - Death [Fatal]
